FAERS Safety Report 16760595 (Version 1)
Quarter: 2019Q4

REPORT INFORMATION
  Report Type: Spontaneous
  Country: US (occurrence: US)
  Receive Date: 20190830
  Receipt Date: 20190830
  Transmission Date: 20200122
  Serious: Yes (Hospitalization)
  Sender: FDA-Public Use
  Company Number: None

PATIENT
  Age: 71 Year
  Sex: Female

DRUGS (2)
  1. DALFAMPRIDINE. [Suspect]
     Active Substance: DALFAMPRIDINE
     Indication: MULTIPLE SCLEROSIS
     Route: 048
     Dates: start: 20190615
  2. MIDODRINE [Concomitant]
     Active Substance: MIDODRINE

REACTIONS (3)
  - Diabetes mellitus [None]
  - Blood pressure abnormal [None]
  - Nausea [None]

NARRATIVE: CASE EVENT DATE: 20190815
